FAERS Safety Report 22351992 (Version 1)
Quarter: 2023Q2

REPORT INFORMATION
  Report Type: Spontaneous
  Country: US (occurrence: None)
  Receive Date: 20230522
  Receipt Date: 20230522
  Transmission Date: 20230722
  Serious: Yes (Death)
  Sender: FDA-Public Use
  Company Number: None

PATIENT
  Age: 73 Year
  Sex: Male
  Weight: 70.76 kg

DRUGS (18)
  1. SORAFENIB [Suspect]
     Active Substance: SORAFENIB
     Indication: Hepatocellular carcinoma
     Dosage: FREQUENCY : TWICE A DAY;?
     Route: 048
     Dates: end: 20230505
  2. ACYCLOVIR [Concomitant]
     Active Substance: ACYCLOVIR
  3. CABOMETYX [Concomitant]
     Active Substance: CABOZANTINIB S-MALATE
  4. DULCOLAX NOS [Concomitant]
     Active Substance: BISACODYL OR DOCUSATE SODIUM
  5. HEMOCYTE [Concomitant]
  6. KETOCONAZOLE [Concomitant]
     Active Substance: KETOCONAZOLE
  7. LACTULOSE [Concomitant]
     Active Substance: LACTULOSE
  8. LOSARTAN [Concomitant]
     Active Substance: LOSARTAN
  9. DIPHENHYDRAMINE HYDROCHLORIDE\LIDOCAINE HYDROCHLORIDE\NYSTATIN [Concomitant]
     Active Substance: DIPHENHYDRAMINE HYDROCHLORIDE\LIDOCAINE HYDROCHLORIDE\NYSTATIN
  10. MEGESTEROL [Concomitant]
  11. PERIDEX [Concomitant]
     Active Substance: CHLORHEXIDINE GLUCONATE
  12. PHENERGAN [Concomitant]
     Active Substance: PROMETHAZINE HYDROCHLORIDE
  13. SPIRONOLACTONE [Concomitant]
     Active Substance: SPIRONOLACTONE
  14. TUSSIN DM [Concomitant]
     Active Substance: DEXTROMETHORPHAN HYDROBROMIDE\GUAIFENESIN
  15. VIT K2 POWDER [Concomitant]
  16. VOLTAREN [Concomitant]
     Active Substance: DICLOFENAC SODIUM
  17. XIFAXAN [Concomitant]
     Active Substance: RIFAXIMIN
  18. ZARXIO [Concomitant]
     Active Substance: FILGRASTIM-SNDZ

REACTIONS (1)
  - Death [None]

NARRATIVE: CASE EVENT DATE: 20230505
